FAERS Safety Report 8380655-X (Version None)
Quarter: 2012Q2

REPORT INFORMATION
  Report Type: 
  Country: None (occurrence: None)
  Receive Date: 20120523
  Receipt Date: 20120523
  Transmission Date: 20120825
  Serious: Yes (Death)
  Sender: FDA-Public Use
  Company Number: US-JNJFOC-20120509913

PATIENT

DRUGS (6)
  1. DOXORUBICIN HCL [Suspect]
     Route: 042
  2. DOXORUBICIN HCL [Suspect]
     Indication: SARCOMATOSIS
     Route: 042
  3. DOXORUBICIN HCL [Suspect]
     Route: 042
  4. FLAVOPIRIDOL [Suspect]
     Route: 042
  5. FLAVOPIRIDOL [Suspect]
     Indication: SARCOMATOSIS
     Route: 042
  6. FLAVOPIRIDOL [Suspect]
     Route: 042

REACTIONS (2)
  - OFF LABEL USE [None]
  - SMALL INTESTINAL PERFORATION [None]
